FAERS Safety Report 20510098 (Version 3)
Quarter: 2022Q3

REPORT INFORMATION
  Report Type: Spontaneous
  Country: BR (occurrence: BR)
  Receive Date: 20220224
  Receipt Date: 20220722
  Transmission Date: 20221026
  Serious: Yes (Death, Hospitalization, Other)
  Sender: FDA-Public Use
  Company Number: BR-SA-SAC20220218001582

PATIENT
  Age: 56 Year
  Sex: Male
  Weight: 77 kg

DRUGS (10)
  1. THYMOGLOBULINE [Suspect]
     Active Substance: LAPINE T-LYMPHOCYTE IMMUNE GLOBULIN
     Indication: Immunosuppression
     Dosage: 225 MG, QD
     Route: 042
     Dates: start: 20220208, end: 20220208
  2. HYDROCORTISONE [Concomitant]
     Active Substance: HYDROCORTISONE
     Indication: Premedication
     Dosage: 300 MG, QD (100MG 3 VIALS 1X DAY IV)
     Route: 042
     Dates: start: 20220208, end: 20220208
  3. CEFAZOLIN [Concomitant]
     Active Substance: CEFAZOLIN
     Indication: Premedication
     Dosage: 1 G, Q8H
     Route: 042
     Dates: start: 20220208, end: 20220209
  4. CEFAZOLIN [Concomitant]
     Active Substance: CEFAZOLIN
     Indication: Surgery
  5. DIPYRONE [Concomitant]
     Active Substance: DIPYRONE
     Indication: Premedication
     Dosage: 1 G, QID
     Route: 042
     Dates: start: 20220208, end: 20220209
  6. DIPYRONE [Concomitant]
     Active Substance: DIPYRONE
     Dosage: 2 ML, 1 AMPOULE ; Q6H
     Route: 042
  7. DIPYRONE [Concomitant]
     Active Substance: DIPYRONE
     Dosage: 2 ML, 1 AMPOULE , QD
     Route: 042
  8. DIAZEPAM [Concomitant]
     Active Substance: DIAZEPAM
     Dosage: 2 ML
     Route: 042
  9. DEXTROSE [Concomitant]
     Active Substance: DEXTROSE
     Dosage: 1 DF (5% 500ML 1 FOR ACM)
     Route: 042
  10. VANCOMYCIN [Concomitant]
     Active Substance: VANCOMYCIN
     Dosage: 2 DF, BID
     Route: 042

REACTIONS (5)
  - Cardiac arrest [Fatal]
  - Loss of consciousness [Fatal]
  - Seizure [Fatal]
  - Haemodynamic instability [Unknown]
  - Tachycardia [Unknown]

NARRATIVE: CASE EVENT DATE: 20220208
